FAERS Safety Report 5238241-6 (Version None)
Quarter: 2007Q1

REPORT INFORMATION
  Report Type: 
  Country: None (occurrence: None)
  Receive Date: 20070215
  Receipt Date: 20070212
  Transmission Date: 20070707
  Serious: Yes (Other)
  Sender: FDA-Public Use
  Company Number: US-AVENTIS-200710909US

PATIENT
  Age: 59 Year
  Sex: Male

DRUGS (2)
  1. TAXOTERE [Suspect]
     Indication: PROSTATE CANCER
     Dosage: DOSE: UNK
     Dates: start: 20060501, end: 20061101
  2. HORMONES AND RELATED AGENTS [Concomitant]
     Dosage: DOSE: UNK

REACTIONS (1)
  - DEMYELINATING POLYNEUROPATHY [None]
